FAERS Safety Report 8595608-6 (Version None)
Quarter: 2012Q3

REPORT INFORMATION
  Report Type: 
  Country: None (occurrence: None)
  Receive Date: 20120815
  Receipt Date: 20120806
  Transmission Date: 20120928
  Serious: Yes (Other)
  Sender: FDA-Public Use
  Company Number: FR-TEVA-352577ISR

PATIENT
  Age: 76 Year
  Sex: Female

DRUGS (3)
  1. VANCOMYCIN [Suspect]
     Route: 065
  2. CIPROFLOXACIN HCL [Suspect]
     Route: 065
  3. TICARCILLIN [Suspect]
     Route: 065

REACTIONS (1)
  - DRUG RASH WITH EOSINOPHILIA AND SYSTEMIC SYMPTOMS [None]
